FAERS Safety Report 24982064 (Version 1)
Quarter: 2025Q1

REPORT INFORMATION
  Report Type: Spontaneous
  Country: FR (occurrence: FR)
  Receive Date: 20250218
  Receipt Date: 20250218
  Transmission Date: 20250408
  Serious: Yes (Hospitalization, Other)
  Sender: BRACCO
  Company Number: None

PATIENT
  Age: 82 Year
  Sex: Female

DRUGS (15)
  1. ACUPAN [Suspect]
     Active Substance: NEFOPAM HYDROCHLORIDE
     Indication: Postoperative analgesia
     Dosage: 1 DF, QD
     Route: 042
     Dates: start: 20250120, end: 20250122
  2. ATRACURIUM [Suspect]
     Active Substance: ATRACURIUM
     Indication: General anaesthesia
     Dosage: 1 DF, QD
     Route: 042
     Dates: start: 20250120, end: 20250120
  3. CEFAZOLIN SODIUM [Suspect]
     Active Substance: CEFAZOLIN SODIUM
     Indication: Antibiotic prophylaxis
     Dosage: 1 DF, QD
     Route: 042
     Dates: start: 20250120, end: 20250120
  4. DEXAMETHASONE [Suspect]
     Active Substance: DEXAMETHASONE
     Indication: General anaesthesia
     Dosage: 1 DF, QD
     Route: 042
     Dates: start: 20250120, end: 20250120
  5. ESKETAMINE [Suspect]
     Active Substance: ESKETAMINE
     Indication: Postoperative analgesia
     Dosage: 1 DF, QD
     Route: 042
     Dates: start: 20250120, end: 20250120
  6. IOMERON [Suspect]
     Active Substance: IOMEPROL
     Indication: Computerised tomogram head
     Route: 042
     Dates: start: 20250122, end: 20250122
  7. LOXAPINE [Suspect]
     Active Substance: LOXAPINE
     Indication: Confusional state
     Dosage: 1 DF, QD
     Route: 030
     Dates: start: 20250121, end: 20250121
  8. MORPHINE HYDROCHLORIDE [Suspect]
     Active Substance: MORPHINE HYDROCHLORIDE
     Indication: Postoperative analgesia
     Dosage: 1 DF, QD
     Route: 042
     Dates: start: 20250120
  9. NOREPINEPHRINE BITARTRATE [Suspect]
     Active Substance: NOREPINEPHRINE BITARTRATE
     Indication: Vasopressive therapy
     Route: 042
     Dates: start: 20250120, end: 20250120
  10. PROPOFOL [Suspect]
     Active Substance: PROPOFOL
     Indication: General anaesthesia
     Dosage: 1 DF, QD
     Route: 042
     Dates: start: 20250120, end: 20250120
  11. SEVOFLURANE [Suspect]
     Active Substance: SEVOFLURANE
     Indication: General anaesthesia
     Dosage: 1 DF, QD
     Route: 042
     Dates: start: 20250120, end: 20250120
  12. SUFENTANIL CITRATE [Suspect]
     Active Substance: SUFENTANIL CITRATE
     Indication: General anaesthesia
     Dosage: 1 DF, QD
     Route: 042
     Dates: start: 20250120, end: 20250120
  13. XYLOCAINE [Suspect]
     Active Substance: LIDOCAINE HYDROCHLORIDE
     Indication: General anaesthesia
     Dosage: 1 DF, QD
     Route: 042
     Dates: start: 20250120, end: 20250120
  14. ONDANSETRON [Suspect]
     Active Substance: ONDANSETRON
     Indication: Prophylaxis of nausea and vomiting
     Dosage: 1 DF, QD
     Route: 042
     Dates: start: 20250120, end: 20250120
  15. ACETAMINOPHEN [Concomitant]
     Active Substance: ACETAMINOPHEN
     Indication: Postoperative analgesia
     Dosage: 1 DF, QD
     Route: 065
     Dates: start: 20250120

REACTIONS (1)
  - Toxic skin eruption [Recovering/Resolving]

NARRATIVE: CASE EVENT DATE: 20250124
